FAERS Safety Report 5410563-5 (Version None)
Quarter: 2007Q3

REPORT INFORMATION
  Report Type: 
  Country: None (occurrence: None)
  Receive Date: 20070810
  Receipt Date: 20070309
  Transmission Date: 20080115
  Serious: No
  Sender: FDA-Public Use
  Company Number: A0642618A

PATIENT
  Sex: Female

DRUGS (3)
  1. PAXIL [Suspect]
     Indication: DEPRESSION
     Dosage: 80MG PER DAY
     Route: 048
     Dates: start: 19970101, end: 20060301
  2. PAXIL CR [Suspect]
     Indication: DEPRESSION
     Dosage: 75MG VARIABLE DOSE
     Route: 048
     Dates: start: 20060301
  3. NO CONCURRENT MEDICATION [Concomitant]

REACTIONS (3)
  - DELIVERY [None]
  - DRUG WITHDRAWAL SYNDROME [None]
  - OVERDOSE [None]
